FAERS Safety Report 7751560-4 (Version None)
Quarter: 2011Q3

REPORT INFORMATION
  Report Type: 
  Country: None (occurrence: None)
  Receive Date: 20110914
  Receipt Date: 20110909
  Transmission Date: 20111222
  Serious: Yes (Death, Other)
  Sender: FDA-Public Use
  Company Number: PHEH2011US03730

PATIENT
  Sex: Female

DRUGS (1)
  1. EXJADE [Suspect]
     Indication: NEOPLASM
     Dosage: 1000 MG, DAILY
     Route: 048
     Dates: start: 20100622

REACTIONS (5)
  - NEOPLASM PROGRESSION [None]
  - DEATH [None]
  - NEOPLASM MALIGNANT [None]
  - LEUKAEMIA [None]
  - DRUG INEFFECTIVE [None]
